FAERS Safety Report 17683361 (Version 2)
Quarter: 2020Q2

REPORT INFORMATION
  Report Type: Report from Study
  Country: None (occurrence: AE)
  Receive Date: 20200420
  Receipt Date: 20200514
  Transmission Date: 20200714
  Serious: Yes (Death, Hospitalization)
  Sender: FDA-Public Use
  Company Number: AE-ABBVIE-20K-166-3370978-00

PATIENT
  Age: 29 Year
  Sex: Female

DRUGS (2)
  1. HUMIRA [Suspect]
     Active Substance: ADALIMUMAB
     Route: 058
     Dates: end: 202001
  2. HUMIRA [Suspect]
     Active Substance: ADALIMUMAB
     Indication: RHEUMATOID ARTHRITIS
     Route: 058
     Dates: start: 20180920, end: 201902

REACTIONS (1)
  - Pulmonary artery aneurysm [Fatal]

NARRATIVE: CASE EVENT DATE: 202002
